FAERS Safety Report 10007674 (Version 2)
Quarter: 2014Q1

REPORT INFORMATION
  Report Type: Spontaneous
  Country: US (occurrence: US)
  Receive Date: 20140313
  Receipt Date: 20140313
  Transmission Date: 20141002
  Serious: Yes (Other)
  Sender: FDA-Public Use
  Company Number: US-GILEAD-2012-0066749

PATIENT
  Sex: Female

DRUGS (2)
  1. LETAIRIS [Suspect]
     Indication: EMPHYSEMA
     Dosage: 10 MG, QD
     Dates: end: 20120413
  2. AMIODARONE [Concomitant]
     Dates: start: 20120531, end: 20121217

REACTIONS (2)
  - Drug ineffective [Unknown]
  - Local swelling [Unknown]
